FAERS Safety Report 19009040 (Version 1)
Quarter: 2021Q1

REPORT INFORMATION
  Report Type: Spontaneous
  Country: DE (occurrence: DE)
  Receive Date: 20210315
  Receipt Date: 20210315
  Transmission Date: 20210420
  Serious: Yes (Death, Hospitalization)
  Sender: FDA-Public Use
  Company Number: DE-TEVA-2021-DE-1888126

PATIENT
  Age: 97 Year
  Sex: Female

DRUGS (3)
  1. BETAHISTIN [Concomitant]
     Active Substance: BETAHISTINE
     Dosage: 12 MILLIGRAM DAILY; 1?0?0?0
  2. BISOPROLOL [Concomitant]
     Active Substance: BISOPROLOL
     Dosage: 5 MG, IF NECESSARY
  3. TORASEMID [Suspect]
     Active Substance: TORSEMIDE
     Dosage: 20 MILLIGRAM DAILY; 1?0?0?0

REACTIONS (6)
  - Dizziness [Unknown]
  - Dehydration [Unknown]
  - General physical health deterioration [Unknown]
  - Condition aggravated [Unknown]
  - Acute kidney injury [Unknown]
  - Dyspnoea [Unknown]
